FAERS Safety Report 16227115 (Version 5)
Quarter: 2019Q4

REPORT INFORMATION
  Report Type: Spontaneous
  Country: PT (occurrence: PT)
  Receive Date: 20190423
  Receipt Date: 20191221
  Transmission Date: 20200122
  Serious: Yes (Hospitalization, Other)
  Sender: FDA-Public Use
  Company Number: PT-AUROBINDO-AUR-APL-2019-022120

PATIENT
  Age: 18 Month
  Sex: Male
  Weight: 8.3 kg

DRUGS (29)
  1. VANCOMYCIN [Suspect]
     Active Substance: VANCOMYCIN
     Indication: STAPHYLOCOCCAL INFECTION
  2. VANCOMYCIN [Suspect]
     Active Substance: VANCOMYCIN
     Indication: CANDIDA INFECTION
  3. FLUCONAZOLE. [Suspect]
     Active Substance: FLUCONAZOLE
     Indication: CANDIDA INFECTION
     Dosage: UNK, FIRST ADMNISTRATION ON DAY 25 OF  HOSPITALIZATION- THIRD ANTIBIOTIC CYCLE
     Route: 042
  4. METRONIDAZOLE. [Suspect]
     Active Substance: METRONIDAZOLE
     Indication: PSEUDOMONAS INFECTION
  5. CEFTAZIDIME. [Concomitant]
     Active Substance: CEFTAZIDIME
     Indication: DEVICE RELATED INFECTION
  6. VANCOMYCIN [Suspect]
     Active Substance: VANCOMYCIN
     Indication: DEVICE RELATED INFECTION
  7. PIPERACILLIN AND TAZOBACTAM [Suspect]
     Active Substance: PIPERACILLIN SODIUM\TAZOBACTAM SODIUM
     Indication: PSEUDOMONAS INFECTION
  8. PIPERACILLIN AND TAZOBACTAM [Suspect]
     Active Substance: PIPERACILLIN SODIUM\TAZOBACTAM SODIUM
     Indication: DEVICE RELATED INFECTION
  9. FLUCONAZOLE. [Suspect]
     Active Substance: FLUCONAZOLE
     Indication: VASCULAR DEVICE INFECTION
     Dosage: UNK
     Route: 042
  10. FLUCONAZOLE. [Suspect]
     Active Substance: FLUCONAZOLE
     Indication: PSEUDOMONAS INFECTION
  11. GENTAMICIN. [Suspect]
     Active Substance: GENTAMICIN
     Indication: STAPHYLOCOCCAL INFECTION
     Dosage: UNK, SECOND ADMNISTRATION : 3 DAYS AFTER FINISHING THE FIRST COURSE OF ANTIBIOTICS
     Route: 042
  12. GENTAMICIN. [Suspect]
     Active Substance: GENTAMICIN
     Indication: CANDIDA INFECTION
  13. CEFTAZIDIME. [Concomitant]
     Active Substance: CEFTAZIDIME
     Indication: DEVICE RELATED INFECTION
  14. FLUCONAZOLE. [Suspect]
     Active Substance: FLUCONAZOLE
     Indication: DEVICE RELATED INFECTION
  15. METRONIDAZOLE. [Suspect]
     Active Substance: METRONIDAZOLE
     Indication: DEVICE RELATED INFECTION
  16. AMPHOTERICIN B. [Suspect]
     Active Substance: AMPHOTERICIN B
     Indication: CANDIDA INFECTION
  17. AMPHOTERICIN B. [Suspect]
     Active Substance: AMPHOTERICIN B
     Indication: PSEUDOMONAS INFECTION
  18. CEFTAZIDIME. [Concomitant]
     Active Substance: CEFTAZIDIME
     Indication: CANDIDA INFECTION
  19. VANCOMYCIN [Suspect]
     Active Substance: VANCOMYCIN
     Indication: PSEUDOMONAS INFECTION
  20. GENTAMICIN. [Suspect]
     Active Substance: GENTAMICIN
     Indication: PSEUDOMONAS INFECTION
     Dosage: UNK, FIRST ADMNISTRATION ( ON DAY 1 OF HOSPITALIZATION)
     Route: 042
  21. AMPHOTERICIN B. [Suspect]
     Active Substance: AMPHOTERICIN B
     Indication: VASCULAR DEVICE INFECTION
     Dosage: STARTED 3 DAYS
     Route: 042
  22. PIPERACILLIN AND TAZOBACTAM [Suspect]
     Active Substance: PIPERACILLIN SODIUM\TAZOBACTAM SODIUM
     Indication: VASCULAR DEVICE INFECTION
     Dosage: UNK
     Route: 042
  23. METRONIDAZOLE. [Suspect]
     Active Substance: METRONIDAZOLE
     Indication: CANDIDA INFECTION
  24. AMPHOTERICIN B. [Suspect]
     Active Substance: AMPHOTERICIN B
     Indication: PSEUDOMONAS INFECTION
  25. GENTAMICIN. [Suspect]
     Active Substance: GENTAMICIN
     Indication: DEVICE RELATED INFECTION
  26. CEFTAZIDIME. [Concomitant]
     Active Substance: CEFTAZIDIME
     Indication: PSEUDOMONAS INFECTION
     Dosage: UNK
     Route: 042
  27. VANCOMYCIN [Suspect]
     Active Substance: VANCOMYCIN
     Indication: VASCULAR DEVICE INFECTION
     Dosage: UNK,THIRD ANTIMICROBIAL CYCLE)
     Route: 042
  28. PIPERACILLIN AND TAZOBACTAM [Suspect]
     Active Substance: PIPERACILLIN SODIUM\TAZOBACTAM SODIUM
     Indication: CANDIDA INFECTION
  29. METRONIDAZOLE. [Suspect]
     Active Substance: METRONIDAZOLE
     Indication: VASCULAR DEVICE INFECTION
     Dosage: UNK
     Route: 042

REACTIONS (12)
  - Acute kidney injury [Recovered/Resolved]
  - Metabolic acidosis [Recovered/Resolved]
  - Respiratory alkalosis [Recovering/Resolving]
  - Oliguria [Recovering/Resolving]
  - Ascites [Recovering/Resolving]
  - Renal tubular dysfunction [Unknown]
  - Weight increased [Recovering/Resolving]
  - Nephropathy toxic [Recovering/Resolving]
  - Off label use [Unknown]
  - Generalised oedema [Recovering/Resolving]
  - Pleural effusion [Recovering/Resolving]
  - Product use issue [Unknown]
